FAERS Safety Report 4542202-X (Version None)
Quarter: 2004Q4

REPORT INFORMATION
  Report Type: 
  Country: None (occurrence: None)
  Receive Date: 20041227
  Receipt Date: 20041217
  Transmission Date: 20050328
  Serious: Yes (Other)
  Sender: FDA-Public Use
  Company Number: HQWYE132421DEC04

PATIENT
  Age: 20 Year
  Sex: Female

DRUGS (1)
  1. ALESSE [Suspect]
     Indication: CONTRACEPTION
     Dosage: 1 TABLET 1X PER 1 DAY, ORAL
     Route: 048
     Dates: start: 20041114

REACTIONS (6)
  - ANAPHYLACTIC REACTION [None]
  - BURNING SENSATION [None]
  - CHEST PAIN [None]
  - DRUG HYPERSENSITIVITY [None]
  - DYSSTASIA [None]
  - SLEEP DISORDER [None]
